FAERS Safety Report 5778696-1 (Version None)
Quarter: 2008Q2

REPORT INFORMATION
  Report Type: 
  Country: None (occurrence: None)
  Receive Date: 20080619
  Receipt Date: 20080617
  Transmission Date: 20081010
  Serious: Yes (Other)
  Sender: FDA-Public Use
  Company Number: A0702859A

PATIENT
  Sex: Female

DRUGS (1)
  1. ALLI [Suspect]
     Indication: WEIGHT LOSS DIET
     Route: 048

REACTIONS (9)
  - ANKLE FRACTURE [None]
  - ARTHRALGIA [None]
  - ARTHROPATHY [None]
  - DRUG INEFFECTIVE [None]
  - FATIGUE [None]
  - LIMB INJURY [None]
  - MEDIAL TIBIAL STRESS SYNDROME [None]
  - OBSESSIVE THOUGHTS [None]
  - WEIGHT INCREASED [None]
